FAERS Safety Report 8080608-5 (Version None)
Quarter: 2012Q1

REPORT INFORMATION
  Report Type: 
  Country: None (occurrence: None)
  Receive Date: 20120130
  Receipt Date: 20120119
  Transmission Date: 20120608
  Serious: Yes (Hospitalization, Other)
  Sender: FDA-Public Use
  Company Number: ES-UCBSA-046861

PATIENT
  Age: 76 Year
  Sex: Male
  Weight: 90 kg

DRUGS (12)
  1. NEUPRO [Suspect]
     Route: 062
     Dates: start: 20110607, end: 20110613
  2. CARBIDOPA AND LEVODOPA [Concomitant]
     Dates: start: 20101008, end: 20110523
  3. ELIGARD [Concomitant]
     Indication: PROSTATE CANCER
     Dosage: 22.5 MG SOLUTION
  4. CARBIDOPA AND LEVODOPA [Concomitant]
     Dates: start: 20101001, end: 20101007
  5. NEUPRO [Suspect]
     Route: 062
     Dates: start: 20110531, end: 20110606
  6. CARBIDOPA AND LEVODOPA [Concomitant]
     Indication: PARKINSON'S DISEASE
     Dates: start: 20110524
  7. CARBIDOPA AND LEVODOPA [Concomitant]
     Dates: start: 20100917, end: 20100923
  8. AZILECT [Concomitant]
     Indication: PARKINSON'S DISEASE
     Dates: start: 20110524
  9. NEUPRO [Suspect]
     Indication: PARKINSON'S DISEASE
     Route: 062
     Dates: start: 20110614
  10. LYRICA [Concomitant]
     Indication: PAIN
     Dates: start: 20110611
  11. CARBIDOPA AND LEVODOPA [Concomitant]
     Dates: start: 20100924, end: 20100930
  12. NEUPRO [Suspect]
     Route: 062
     Dates: start: 20110524, end: 20110530

REACTIONS (1)
  - BRACHIAL PLEXOPATHY [None]
